FAERS Safety Report 8038290-9 (Version None)
Quarter: 2012Q1

REPORT INFORMATION
  Report Type: 
  Country: None (occurrence: None)
  Receive Date: 20120111
  Receipt Date: 20111209
  Transmission Date: 20120608
  Serious: No
  Sender: FDA-Public Use
  Company Number: US-AMGEN-USASP2011065907

PATIENT
  Age: 68 Year
  Sex: Female

DRUGS (1)
  1. ENBREL [Suspect]
     Indication: RHEUMATOID ARTHRITIS
     Dosage: 25 MG, 2 TIMES/WK
     Dates: start: 20030501, end: 20111208

REACTIONS (16)
  - FATIGUE [None]
  - PAIN [None]
  - DECREASED APPETITE [None]
  - FLUSHING [None]
  - EYE PRURITUS [None]
  - MALAISE [None]
  - JOINT ADHESION [None]
  - WEIGHT DECREASED [None]
  - CONTUSION [None]
  - HEADACHE [None]
  - INFLUENZA LIKE ILLNESS [None]
  - OCULAR HYPERAEMIA [None]
  - TENDONITIS [None]
  - STRESS [None]
  - ARTHRITIS [None]
  - BRONCHITIS [None]
